FAERS Safety Report 4425165-7 (Version None)
Quarter: 2004Q3

REPORT INFORMATION
  Report Type: 
  Country: None (occurrence: None)
  Receive Date: 20040809
  Receipt Date: 20040728
  Transmission Date: 20050211
  Serious: Yes (Death)
  Sender: FDA-Public Use
  Company Number: 200076

PATIENT
  Age: 13 Year
  Sex: Male
  Weight: 22.1 kg

DRUGS (1)
  1. NUTROPIN DEPOT [Suspect]
     Indication: GROWTH HORMONE DEFICIENCY
     Dosage: 16.5 MG
     Dates: start: 20011004, end: 20030124

REACTIONS (2)
  - MYOCARDITIS [None]
  - VOMITING [None]
